FAERS Safety Report 4809680-X (Version None)
Quarter: 2005Q4

REPORT INFORMATION
  Report Type: 
  Country: None (occurrence: None)
  Receive Date: 20051021
  Receipt Date: 20040114
  Transmission Date: 20060501
  Serious: No
  Sender: FDA-Public Use
  Company Number: USA040156645

PATIENT
  Age: 84 Year
  Sex: Male

DRUGS (2)
  1. ZYPREXA [Suspect]
     Indication: ANXIETY
     Dosage: 5 MG/AT BEDTIME
     Dates: start: 20040109, end: 20040112
  2. ZYPREXA [Suspect]
     Indication: POST PROCEDURAL COMPLICATION
     Dosage: 5 MG/AT BEDTIME
     Dates: start: 20040109, end: 20040112

REACTIONS (1)
  - EOSINOPHILIA [None]
